FAERS Safety Report 8153455-3 (Version None)
Quarter: 2012Q1

REPORT INFORMATION
  Report Type: 
  Country: None (occurrence: None)
  Receive Date: 20120221
  Receipt Date: 20120213
  Transmission Date: 20120608
  Serious: Yes (Death, Other)
  Sender: FDA-Public Use
  Company Number: CA-ROCHE-1014207

PATIENT
  Sex: Male
  Weight: 94.886 kg

DRUGS (7)
  1. AVASTIN [Suspect]
     Indication: GLIOBLASTOMA
     Route: 042
     Dates: start: 20111102, end: 20111130
  2. PROCHLORPERAZINE [Concomitant]
  3. DIPHENHYDRAMINE HCL [Concomitant]
     Route: 048
     Dates: start: 20111130, end: 20111130
  4. ACETAMINOPHEN [Concomitant]
     Route: 048
     Dates: start: 20111130, end: 20111130
  5. METHYLPREDNISOLONE [Concomitant]
     Route: 042
     Dates: start: 20111130, end: 20111130
  6. DECADRON [Concomitant]
  7. PANTOPRAZOLE [Concomitant]

REACTIONS (3)
  - DIABETES MELLITUS [None]
  - WOUND [None]
  - DISEASE PROGRESSION [None]
